FAERS Safety Report 6511284-8 (Version None)
Quarter: 2009Q4

REPORT INFORMATION
  Report Type: 
  Country: None (occurrence: None)
  Receive Date: 20091222
  Receipt Date: 20090323
  Transmission Date: 20100525
  Serious: No
  Sender: FDA-Public Use
  Company Number: US-ASTRAZENECA-2009UW07400

PATIENT
  Age: 61 Year
  Sex: Female

DRUGS (7)
  1. CRESTOR [Suspect]
     Indication: HYPERCHOLESTEROLAEMIA
     Route: 048
     Dates: start: 20090309
  2. WELCHOL [Concomitant]
  3. ACTOS [Concomitant]
  4. CARDIZEM [Concomitant]
  5. POTASSIUM [Concomitant]
  6. LASIX [Concomitant]
  7. DIOVAN [Concomitant]

REACTIONS (1)
  - MUSCLE SPASMS [None]
